FAERS Safety Report 8707174 (Version 2)
Quarter: 2013Q4

REPORT INFORMATION
  Report Type: Spontaneous
  Country: GB (occurrence: GB)
  Receive Date: 20120803
  Receipt Date: 20131108
  Transmission Date: 20140711
  Serious: Yes (Hospitalization, Other)
  Sender: FDA-Public Use
  Company Number: GB-009507513-2010SP008417

PATIENT
  Age: 49 Year
  Sex: Male

DRUGS (3)
  1. MK-8908 [Suspect]
     Indication: HEPATITIS C
     Dosage: 800 MG, BID
     Route: 048
     Dates: start: 20090504, end: 20100205
  2. PEGASYS [Suspect]
     Indication: HEPATITIS C
     Dosage: UNK UNK, QW
     Route: 058
     Dates: start: 20090504
  3. PEGASYS [Suspect]
     Dosage: 90 ?G, QW
     Route: 058
     Dates: end: 20100205

REACTIONS (3)
  - Retinal haemorrhage [Recovering/Resolving]
  - Blood glucose increased [Not Recovered/Not Resolved]
  - Platelet count decreased [Unknown]
